FAERS Safety Report 6453032-6 (Version None)
Quarter: 2009Q4

REPORT INFORMATION
  Report Type: 
  Country: None (occurrence: None)
  Receive Date: 20091124
  Receipt Date: 20090910
  Transmission Date: 20100525
  Serious: Yes (Hospitalization)
  Sender: FDA-Public Use
  Company Number: US-ABBOTT-09P-163-0590538-00

PATIENT
  Sex: Female
  Weight: 70.37 kg

DRUGS (6)
  1. TRICOR [Suspect]
     Indication: BLOOD CHOLESTEROL INCREASED
     Dates: start: 20060101, end: 20090701
  2. CYMBALTA [Concomitant]
     Indication: ANXIETY
  3. ATIVAN [Concomitant]
     Indication: ANXIETY
  4. LIPITOR [Concomitant]
     Indication: BLOOD CHOLESTEROL INCREASED
  5. HYDROCHLOROTHIAZIDE [Concomitant]
     Indication: HYPERTENSION
  6. ACTOS [Concomitant]
     Indication: GLUCOSE TOLERANCE IMPAIRED

REACTIONS (3)
  - ARTHRALGIA [None]
  - FATIGUE [None]
  - SOMNOLENCE [None]
